FAERS Safety Report 25835365 (Version 1)
Quarter: 2025Q3

REPORT INFORMATION
  Report Type: Spontaneous
  Country: US (occurrence: US)
  Receive Date: 20250923
  Receipt Date: 20250923
  Transmission Date: 20251021
  Serious: Yes (Other)
  Sender: COOPERSURGICAL
  Company Number: US-COOPERSURGICAL, INC.-2025CPS006801

PATIENT
  Age: 42 Year
  Sex: Female
  Weight: 97.506 kg

DRUGS (2)
  1. PARAGARD T 380A [Suspect]
     Active Substance: COPPER
     Indication: Menstrual cycle management
     Dates: start: 20160420
  2. CITALOPRAM [Concomitant]
     Active Substance: CITALOPRAM
     Dates: start: 20160126

REACTIONS (17)
  - Surgery [Recovered/Resolved]
  - Hysterectomy [Recovered/Resolved]
  - Reproductive complication associated with device [Not Recovered/Not Resolved]
  - Salpingectomy [Unknown]
  - Device breakage [Recovered/Resolved]
  - Foreign body in reproductive tract [Recovered/Resolved]
  - Complication of device removal [Recovered/Resolved]
  - Embedded device [Recovered/Resolved]
  - Endometriosis [Unknown]
  - Adenomyosis [Unknown]
  - Emotional distress [Unknown]
  - Off label use [Unknown]
  - Pelvic pain [Recovered/Resolved]
  - Heavy menstrual bleeding [Recovered/Resolved]
  - Muscle spasms [Unknown]
  - Vaginal haemorrhage [Recovered/Resolved]
  - Back pain [Recovered/Resolved]

NARRATIVE: CASE EVENT DATE: 20211220
